FAERS Safety Report 7654224-0 (Version None)
Quarter: 2011Q3

REPORT INFORMATION
  Report Type: 
  Country: None (occurrence: None)
  Receive Date: 20110803
  Receipt Date: 20110725
  Transmission Date: 20111222
  Serious: Yes (Life-Threatening, Hospitalization)
  Sender: FDA-Public Use
  Company Number: IL-US-EMD SERONO, INC.-7072132

PATIENT
  Sex: Female

DRUGS (6)
  1. REBIF [Suspect]
     Indication: MULTIPLE SCLEROSIS
     Route: 058
     Dates: start: 20050101, end: 20110717
  2. LAMICTAL [Concomitant]
     Route: 048
     Dates: start: 20090101
  3. LEVOTHYROXINE SODIUM [Concomitant]
     Route: 048
  4. ELATROLET [Concomitant]
     Route: 048
     Dates: start: 20090101
  5. PAXXET [Concomitant]
     Route: 048
  6. XANAX [Concomitant]
     Route: 048

REACTIONS (3)
  - CENTRAL NERVOUS SYSTEM LESION [None]
  - EPILEPSY [None]
  - DRUG INEFFECTIVE [None]
